FAERS Safety Report 10255780 (Version 2)
Quarter: 2014Q2

REPORT INFORMATION
  Report Type: Spontaneous
  Country: DE (occurrence: DE)
  Receive Date: 20140624
  Receipt Date: 20140624
  Transmission Date: 20141212
  Serious: Yes (Death)
  Sender: FDA-Public Use
  Company Number: DE-BIOMARINAP-DE-2014-103399

PATIENT
  Age: 21 Year
  Sex: Female

DRUGS (2)
  1. NAGLAZYME [Suspect]
     Dosage: 35 MG, QW
     Route: 041
  2. OXYGEN [Concomitant]
     Indication: PRODUCT USED FOR UNKNOWN INDICATION

REACTIONS (1)
  - Cardiac arrest [Fatal]
